FAERS Safety Report 7113380-3 (Version None)
Quarter: 2010Q4

REPORT INFORMATION
  Report Type: 
  Country: None (occurrence: None)
  Receive Date: 20101119
  Receipt Date: 20101109
  Transmission Date: 20110411
  Serious: Yes (Other)
  Sender: FDA-Public Use
  Company Number: PHHY2010CA11153

PATIENT

DRUGS (5)
  1. ALISKIREN ALI+ [Suspect]
     Dosage: 300 MG, QD
     Route: 048
  2. CALCIUM CHANNEL BLOCKERS [Concomitant]
     Dosage: UNK
  3. DIURETICS [Concomitant]
     Dosage: UNK
  4. ANGIOTENSIN CONVERTING ENZYME BLOCKERS [Concomitant]
  5. BETA BLOCKING AGENTS [Concomitant]

REACTIONS (4)
  - BLOOD PRESSURE INADEQUATELY CONTROLLED [None]
  - DRUG INEFFECTIVE [None]
  - MICROALBUMINURIA [None]
  - URINE ALBUMIN/CREATININE RATIO INCREASED [None]
